FAERS Safety Report 9234644 (Version 1)
Quarter: 2013Q2

REPORT INFORMATION
  Report Type: Spontaneous
  Country: US (occurrence: US)
  Receive Date: 20130416
  Receipt Date: 20130416
  Transmission Date: 20140414
  Serious: No
  Sender: FDA-Public Use
  Company Number: US-PFIZER INC-2013115618

PATIENT
  Sex: Male

DRUGS (4)
  1. LATANOPROST [Suspect]
     Indication: OCULAR HYPERTENSION
     Dosage: UNK, 1X/DAY
     Route: 047
  2. LATANOPROST [Suspect]
     Dosage: UNK, 1X/DAY
     Route: 047
  3. ATENOLOL [Concomitant]
     Indication: HYPERTENSION
     Dosage: UNK
  4. LEVOTHYROXINE [Concomitant]
     Indication: HYPOTHYROIDISM
     Dosage: UNK

REACTIONS (1)
  - Intraocular pressure increased [Unknown]
